FAERS Safety Report 14146135 (Version 1)
Quarter: 2017Q4

REPORT INFORMATION
  Report Type: Spontaneous
  Country: US (occurrence: US)
  Receive Date: 20171031
  Receipt Date: 20171031
  Transmission Date: 20180321
  Serious: No
  Sender: FDA-Public Use
  Company Number: US-BAYER-2017-209284

PATIENT
  Age: 43 Year
  Sex: Female

DRUGS (2)
  1. GADAVIST [Suspect]
     Active Substance: GADOBUTROL
     Indication: IMAGING PROCEDURE
     Dosage: 7 ML, ONCE
     Route: 042
  2. GADAVIST [Suspect]
     Active Substance: GADOBUTROL
     Indication: BREAST CANCER

REACTIONS (5)
  - Dyspnoea [None]
  - Cough [None]
  - Nausea [None]
  - Dizziness [None]
  - Throat tightness [None]

NARRATIVE: CASE EVENT DATE: 20171025
